FAERS Safety Report 14492109 (Version 5)
Quarter: 2018Q2

REPORT INFORMATION
  Report Type: Report from Study
  Country: ES (occurrence: ES)
  Receive Date: 20180206
  Receipt Date: 20180614
  Transmission Date: 20180711
  Serious: Yes (Hospitalization)
  Sender: FDA-Public Use
  Company Number: ES-ROCHE-2068091

PATIENT
  Age: 84 Year
  Sex: Male
  Weight: 87.9 kg

DRUGS (3)
  1. ATEZOLIZUMAB. [Suspect]
     Active Substance: ATEZOLIZUMAB
     Indication: LUNG ADENOCARCINOMA
     Dosage: ATEZOLIZUMAB WAS AT 19:00 HOURS WITH THE MOST RECENT DOSE ADMINISTERED AT 19:40 HOURS
     Route: 042
     Dates: start: 20171226
  2. DARATUMUMAB [Suspect]
     Active Substance: DARATUMUMAB
     Indication: LUNG ADENOCARCINOMA
     Route: 042
     Dates: start: 20171108, end: 20171226
  3. DARATUMUMAB [Suspect]
     Active Substance: DARATUMUMAB
     Dosage: START TIME WAS 12:10 HOURS WITH MOST RECENT DOSE AT 16:10 HOURS
     Route: 042
     Dates: start: 20180109, end: 20180109

REACTIONS (2)
  - Atrial fibrillation [Recovered/Resolved]
  - Pneumonitis [Recovered/Resolved]

NARRATIVE: CASE EVENT DATE: 20180116
